FAERS Safety Report 13684249 (Version 3)
Quarter: 2018Q2

REPORT INFORMATION
  Report Type: Spontaneous
  Country: PT (occurrence: PT)
  Receive Date: 20170623
  Receipt Date: 20180531
  Transmission Date: 20180711
  Serious: Yes (Death, Other)
  Sender: FDA-Public Use
  Company Number: PT-AUROBINDO-AUR-APL-2012-05137

PATIENT
  Age: 32 Year
  Sex: Male

DRUGS (27)
  1. PAROXETINE. [Suspect]
     Active Substance: PAROXETINE
     Indication: SUICIDE ATTEMPT
     Dosage: UNK
     Route: 048
  2. PAROXETINE. [Suspect]
     Active Substance: PAROXETINE
     Dosage: UNK ()
     Route: 048
  3. QUETIAPINE. [Suspect]
     Active Substance: QUETIAPINE
     Dosage: UNK ()
     Route: 048
  4. LORAZEPAM. [Suspect]
     Active Substance: LORAZEPAM
     Indication: SUICIDE ATTEMPT
     Dosage: UNK
     Route: 048
  5. RISPERIDONE. [Suspect]
     Active Substance: RISPERIDONE
     Indication: PRODUCT USED FOR UNKNOWN INDICATION
     Dosage: UNK ()
     Route: 048
  6. BROMAZEPAM [Suspect]
     Active Substance: BROMAZEPAM
     Dosage: UNK ()
     Route: 065
  7. DIAZEPAM. [Suspect]
     Active Substance: DIAZEPAM
     Indication: SUICIDE ATTEMPT
     Dosage: UNK
     Route: 048
  8. FLUOXETINE [Suspect]
     Active Substance: FLUOXETINE HYDROCHLORIDE
     Dosage: UNK ()
     Route: 048
  9. LORAZEPAM. [Suspect]
     Active Substance: LORAZEPAM
     Indication: PRODUCT USED FOR UNKNOWN INDICATION
     Route: 048
  10. HALOPERIDOL. [Suspect]
     Active Substance: HALOPERIDOL
     Indication: BIPOLAR DISORDER
     Route: 048
  11. DIAZEPAM. [Suspect]
     Active Substance: DIAZEPAM
     Indication: PRODUCT USED FOR UNKNOWN INDICATION
     Dosage: UNK ()
     Route: 048
  12. OLANZAPINE. [Suspect]
     Active Substance: OLANZAPINE
     Dosage: UNK ()
     Route: 048
  13. PAROXETINE. [Suspect]
     Active Substance: PAROXETINE
     Indication: BIPOLAR DISORDER
     Route: 048
  14. QUETIAPINE. [Suspect]
     Active Substance: QUETIAPINE
     Indication: SUICIDE ATTEMPT
     Dosage: UNK
     Route: 048
  15. HALOPERIDOL. [Suspect]
     Active Substance: HALOPERIDOL
     Indication: SUICIDE ATTEMPT
     Dosage: UNK
     Route: 048
  16. OLANZAPINE. [Suspect]
     Active Substance: OLANZAPINE
     Indication: SUICIDE ATTEMPT
     Dosage: UNK
     Route: 048
  17. HALOPERIDOL. [Suspect]
     Active Substance: HALOPERIDOL
     Dosage: UNK ()
     Route: 048
  18. BROMAZEPAM [Suspect]
     Active Substance: BROMAZEPAM
     Indication: SUICIDE ATTEMPT
     Dosage: UNK
     Route: 048
  19. FLUOXETINE [Suspect]
     Active Substance: FLUOXETINE HYDROCHLORIDE
     Indication: SUICIDE ATTEMPT
     Dosage: UNK
     Route: 048
  20. QUETIAPINE. [Suspect]
     Active Substance: QUETIAPINE
     Indication: BIPOLAR DISORDER
     Route: 048
  21. NORDAZEPAM [Suspect]
     Active Substance: NORDAZEPAM
     Indication: SUICIDE ATTEMPT
     Route: 048
  22. ZOLPIDEM [Concomitant]
     Active Substance: ZOLPIDEM\ZOLPIDEM TARTRATE
     Indication: PRODUCT USED FOR UNKNOWN INDICATION
     Dosage: UNK ()
     Route: 065
  23. FLUOXETINE [Suspect]
     Active Substance: FLUOXETINE HYDROCHLORIDE
     Indication: BIPOLAR DISORDER
     Route: 048
  24. OLANZAPINE. [Suspect]
     Active Substance: OLANZAPINE
     Indication: BIPOLAR DISORDER
     Route: 048
  25. RISPERIDONE. [Suspect]
     Active Substance: RISPERIDONE
     Indication: SUICIDE ATTEMPT
     Dosage: UNK
     Route: 048
  26. LORAZEPAM. [Suspect]
     Active Substance: LORAZEPAM
     Dosage: UNK ()
     Route: 048
  27. BROMAZEPAM [Suspect]
     Active Substance: BROMAZEPAM
     Indication: BIPOLAR DISORDER
     Route: 048

REACTIONS (8)
  - Oral discharge [Unknown]
  - Pulmonary congestion [Fatal]
  - Acute pulmonary oedema [Fatal]
  - Vascular stenosis [Fatal]
  - Completed suicide [Fatal]
  - Visceral congestion [Fatal]
  - Intentional overdose [Fatal]
  - Toxicity to various agents [Fatal]
